FAERS Safety Report 8336193-3 (Version None)
Quarter: 2012Q2

REPORT INFORMATION
  Report Type: 
  Country: None (occurrence: None)
  Receive Date: 20120504
  Receipt Date: 20120427
  Transmission Date: 20120825
  Serious: Yes (Hospitalization)
  Sender: FDA-Public Use
  Company Number: US-PFIZER INC-2012105863

PATIENT
  Sex: Female

DRUGS (2)
  1. VFEND [Suspect]
     Indication: ENDOPHTHALMITIS
     Dosage: 200 MG, 2X/DAY
  2. AMPHOTERICIN B [Concomitant]
     Indication: ENDOPHTHALMITIS
     Route: 031

REACTIONS (1)
  - HYPERSENSITIVITY [None]
